FAERS Safety Report 23842600 (Version 1)
Quarter: 2024Q2

REPORT INFORMATION
  Report Type: Spontaneous
  Country: NO (occurrence: NO)
  Receive Date: 20240510
  Receipt Date: 20240510
  Transmission Date: 20240716
  Serious: Yes (Life-Threatening, Hospitalization)
  Sender: FDA-Public Use
  Company Number: None

PATIENT
  Age: 61 Year
  Sex: Female

DRUGS (5)
  1. VOLTAREN [Interacting]
     Active Substance: DICLOFENAC SODIUM
     Indication: Arthralgia
     Dosage: 50 MG, TID (50 MILLIGRAMS (1 TABLET) UP TO 3 TIMES DAILY. USED ON A REGULAR BASIS)
     Route: 048
  2. RAMIPRIL [Interacting]
     Active Substance: RAMIPRIL
     Indication: Product used for unknown indication
     Dosage: UNK (CONFLICTING INFORMATION REGARDING RAMIPRIL USE: THE REPORT STATES THAT ACCORDING TO THE PATIENT
     Route: 048
  3. METOCLOPRAMIDE HYDROCHLORIDE [Interacting]
     Active Substance: METOCLOPRAMIDE HYDROCHLORIDE
     Indication: Product used for unknown indication
     Dosage: UNK (TAKEN OUT ON PRESCRIPTION 16/APR/2024.)
     Route: 048
     Dates: start: 20240416
  4. FLAGYL [Interacting]
     Active Substance: METRONIDAZOLE\METRONIDAZOLE HYDROCHLORIDE
     Indication: Cholecystitis
     Dosage: 400 MG, Q8H
     Route: 048
     Dates: start: 20240416, end: 20240421
  5. BACTRIM [Interacting]
     Active Substance: SULFAMETHOXAZOLE\TRIMETHOPRIM
     Indication: Cholecystitis
     Dosage: 2 DOSAGE FORM, Q12H, (80 MG)
     Route: 048
     Dates: start: 20240416, end: 20240422

REACTIONS (8)
  - Hyponatraemia [Recovering/Resolving]
  - Fatigue [Recovering/Resolving]
  - Hyperkalaemia [Recovering/Resolving]
  - Muscle spasms [Recovering/Resolving]
  - Abdominal pain [Recovering/Resolving]
  - Dyspnoea exertional [Recovering/Resolving]
  - Drug interaction [Recovering/Resolving]
  - Malaise [Recovering/Resolving]

NARRATIVE: CASE EVENT DATE: 20240401
